FAERS Safety Report 9637878 (Version 1)
Quarter: 2013Q4

REPORT INFORMATION
  Report Type: Spontaneous
  Country: US (occurrence: US)
  Receive Date: 20131022
  Receipt Date: 20131022
  Transmission Date: 20140711
  Serious: Yes (Other)
  Sender: FDA-Public Use
  Company Number: US-RB-058877-13

PATIENT
  Age: 18 Year
  Sex: Female

DRUGS (1)
  1. DELSYM ADULT GRAPE LIQUID [Suspect]
     Indication: PRODUCT USED FOR UNKNOWN INDICATION
     Dosage: TOOK 10 ML DOSE ONCE ON 24-SEP-2013.
     Route: 048
     Dates: start: 20130924

REACTIONS (7)
  - Hallucination [Recovered/Resolved]
  - Blindness [Recovered/Resolved]
  - Panic attack [Recovered/Resolved]
  - Mydriasis [Recovered/Resolved]
  - Erythema [Recovered/Resolved]
  - Hyperacusis [Recovered/Resolved]
  - Photophobia [Recovered/Resolved]
